FAERS Safety Report 4765945-1 (Version None)
Quarter: 2005Q3

REPORT INFORMATION
  Report Type: 
  Country: None (occurrence: None)
  Receive Date: 20050907
  Receipt Date: 20050825
  Transmission Date: 20060218
  Serious: Yes (Hospitalization, Other)
  Sender: FDA-Public Use
  Company Number: 2005073479

PATIENT
  Age: 45 Year
  Sex: Female

DRUGS (5)
  1. NEURONTIN [Suspect]
     Indication: BACK PAIN
     Dosage: 900 MG (300 MG, 3 IN 1 D), ORAL
     Route: 048
     Dates: start: 20040101
  2. NEURONTIN [Suspect]
     Indication: NEUROPATHIC PAIN
     Dosage: 900 MG (300 MG, 3 IN 1 D), ORAL
     Route: 048
     Dates: start: 20040101
  3. IXEL (MILNACIPRAN) [Concomitant]
  4. LUDIOMIL [Concomitant]
  5. NEOZINE (LEVOMEPROMAZINE) [Concomitant]

REACTIONS (9)
  - ABDOMINAL PAIN UPPER [None]
  - ARRHYTHMIA [None]
  - BLOOD PRESSURE FLUCTUATION [None]
  - CARDIAC FAILURE [None]
  - CONDITION AGGRAVATED [None]
  - GASTRIC ULCER [None]
  - HYPERHIDROSIS [None]
  - NEUROPATHIC PAIN [None]
  - PALLOR [None]
